FAERS Safety Report 5201797-3 (Version None)
Quarter: 2007Q1

REPORT INFORMATION
  Report Type: 
  Country: None (occurrence: None)
  Receive Date: 20070104
  Receipt Date: 20061222
  Transmission Date: 20070707
  Serious: Yes (Life-Threatening, Hospitalization, Other)
  Sender: FDA-Public Use
  Company Number: GXKR2006FR08479

PATIENT
  Age: 59 Year
  Sex: Female
  Weight: 40 kg

DRUGS (10)
  1. HYDROXYCHLOROQUINE SULFATE [Suspect]
     Indication: CUTANEOUS LUPUS ERYTHEMATOSUS
     Dosage: 200 MG, BID
  2. CHLOROQUINE PHOSPHATE [Suspect]
     Indication: CUTANEOUS LUPUS ERYTHEMATOSUS
     Dosage: 300 MG, QD
  3. COLLAGEN (AMINOBENZOIC ACID, CALCIUM PANTOTHENATE, CHLOROQUINE PHOSPHA [Suspect]
     Indication: CUTANEOUS LUPUS ERYTHEMATOSUS
     Dosage: BD
     Dates: start: 19860101, end: 19890101
  4. PREDNISONE TAB [Concomitant]
  5. HYDROCORTISONE [Concomitant]
  6. RAMIPRIL [Concomitant]
  7. PRAVASTATIN [Concomitant]
  8. ASPIRIN [Concomitant]
  9. FUROSEMIDE [Concomitant]
  10. SPIRONOLACTONE [Concomitant]

REACTIONS (14)
  - AREFLEXIA [None]
  - ATRIOVENTRICULAR BLOCK COMPLETE [None]
  - BUNDLE BRANCH BLOCK LEFT [None]
  - CARDIAC FAILURE CONGESTIVE [None]
  - CARDIO-RESPIRATORY ARREST [None]
  - CARDIOMYOPATHY [None]
  - DILATATION VENTRICULAR [None]
  - DRUG TOXICITY [None]
  - HEART TRANSPLANT [None]
  - MUSCULAR WEAKNESS [None]
  - MYOPATHY [None]
  - PERIPHERAL SENSORY NEUROPATHY [None]
  - RETINOPATHY [None]
  - VENTRICULAR HYPERTROPHY [None]
